FAERS Safety Report 14294555 (Version 1)
Quarter: 2017Q4

REPORT INFORMATION
  Report Type: Report from Study
  Country: None (occurrence: TW)
  Receive Date: 20171218
  Receipt Date: 20171218
  Transmission Date: 20180321
  Serious: Yes (Hospitalization)
  Sender: FDA-Public Use
  Company Number: TW-ABBVIE-17K-153-2170547-00

PATIENT
  Age: 59 Year
  Sex: Male
  Weight: 51 kg

DRUGS (2)
  1. HUMIRA [Suspect]
     Active Substance: ADALIMUMAB
     Indication: CROHN^S DISEASE
     Route: 058
     Dates: start: 20141002
  2. INFLORAN BERNA [Concomitant]
     Indication: CROHN^S DISEASE
     Route: 048
     Dates: start: 20171017

REACTIONS (20)
  - Mean cell haemoglobin decreased [Unknown]
  - Crohn^s disease [Recovered/Resolved]
  - Haematocrit decreased [Unknown]
  - Blood sodium decreased [Unknown]
  - Haemoglobin decreased [Unknown]
  - Haematocrit decreased [Unknown]
  - Blood potassium decreased [Unknown]
  - Mean cell haemoglobin concentration decreased [Unknown]
  - White blood cell count increased [Unknown]
  - Bone lesion [Unknown]
  - Diarrhoea haemorrhagic [Recovered/Resolved]
  - Eosinophil count decreased [Unknown]
  - Mean cell haemoglobin decreased [Unknown]
  - Platelet count increased [Unknown]
  - Haemoglobin decreased [Unknown]
  - Electrocardiogram QT prolonged [Unknown]
  - Mean cell volume decreased [Unknown]
  - Abdominal lymphadenopathy [Unknown]
  - Lung infiltration [Unknown]
  - Haemoglobin decreased [Unknown]

NARRATIVE: CASE EVENT DATE: 20171019
